FAERS Safety Report 5816673-2 (Version None)
Quarter: 2008Q3

REPORT INFORMATION
  Report Type: 
  Country: None (occurrence: None)
  Receive Date: 20080721
  Receipt Date: 20080710
  Transmission Date: 20090109
  Serious: Yes (Other)
  Sender: FDA-Public Use
  Company Number: BR-PFIZER INC-2008058678

PATIENT
  Age: 83 Year
  Sex: Male

DRUGS (5)
  1. XALATAN [Suspect]
     Indication: GLAUCOMA
     Dosage: DAILY DOSE:1.5MCG-TEXT:1.5MCG IN LEFT EYE DAILY
  2. ANTI-DIABETICS [Concomitant]
     Indication: DIABETES MELLITUS
     Route: 065
  3. ANTIHYPERTENSIVES [Concomitant]
     Indication: HYPERTENSION
     Route: 065
  4. COSOPT [Concomitant]
     Route: 065
  5. ALPHAGAN [Concomitant]
     Route: 065

REACTIONS (3)
  - EYE IRRITATION [None]
  - INTRAOCULAR PRESSURE INCREASED [None]
  - OCULAR HYPERAEMIA [None]
